FAERS Safety Report 19361006 (Version 3)
Quarter: 2022Q1

REPORT INFORMATION
  Report Type: Spontaneous
  Country: US (occurrence: US)
  Receive Date: 20210601
  Receipt Date: 20220304
  Transmission Date: 20220423
  Serious: Yes (Hospitalization, Other)
  Sender: FDA-Public Use
  Company Number: US-AMNEAL PHARMACEUTICALS-2021-AMRX-01904

PATIENT
  Age: 65 Year
  Sex: Female

DRUGS (4)
  1. RYTARY [Suspect]
     Active Substance: CARBIDOPA\LEVODOPA
     Indication: Parkinson^s disease
     Dosage: UNK, 4X/DAY
     Route: 048
  2. RYTARY [Suspect]
     Active Substance: CARBIDOPA\LEVODOPA
     Dosage: 4 CAPSULES, QID
     Route: 048
     Dates: end: 202104
  3. RYTARY [Suspect]
     Active Substance: CARBIDOPA\LEVODOPA
     Dosage: UNK
     Route: 048
     Dates: start: 2021, end: 20210728
  4. RYTARY [Suspect]
     Active Substance: CARBIDOPA\LEVODOPA
     Dosage: NOT TAKING RYTARY AS INSTRUCTED IN ORDER TO TRY TO MAKE MEDS LAST LONGER
     Route: 048

REACTIONS (4)
  - Multiple fractures [Recovering/Resolving]
  - Fall [Unknown]
  - Tremor [Not Recovered/Not Resolved]
  - Inappropriate schedule of product administration [Unknown]

NARRATIVE: CASE EVENT DATE: 20210516
